FAERS Safety Report 4608323-8 (Version None)
Quarter: 2005Q1

REPORT INFORMATION
  Report Type: 
  Country: None (occurrence: None)
  Receive Date: 20050228
  Receipt Date: 20041126
  Transmission Date: 20050727
  Serious: Yes (Hospitalization)
  Sender: FDA-Public Use
  Company Number: FABR-10904

PATIENT
  Age: 51 Year
  Sex: Male

DRUGS (7)
  1. FABRAZYME [Suspect]
     Indication: FABRY'S DISEASE
     Dosage: 70 MG Q2WKS  IV
     Route: 042
     Dates: start: 20031015
  2. SOLUPRED [Concomitant]
  3. ACTONEL [Concomitant]
  4. TRIATEC [Concomitant]
  5. VASTAREL [Concomitant]
  6. ELISOR [Concomitant]
  7. OMEPRAZOLE [Concomitant]

REACTIONS (1)
  - CEREBROVASCULAR ACCIDENT [None]
